FAERS Safety Report 13027228 (Version 1)
Quarter: 2016Q4

REPORT INFORMATION
  Report Type: Spontaneous
  Country: US (occurrence: US)
  Receive Date: 20161214
  Receipt Date: 20161214
  Transmission Date: 20170207
  Serious: No
  Sender: FDA-Public Use
  Company Number: None

PATIENT
  Age: 13 Year
  Sex: Female

DRUGS (3)
  1. NORDITROPIN [Suspect]
     Active Substance: SOMATROPIN
     Indication: EHLERS-DANLOS SYNDROME
     Dosage: 10MG/1.5ML - 1.3MG, QD AS DIRECTED
     Route: 058
     Dates: start: 20140414
  2. TYLENOL [Concomitant]
     Active Substance: ACETAMINOPHEN
  3. AMOXICILLIN. [Concomitant]
     Active Substance: AMOXICILLIN

REACTIONS (1)
  - Joint dislocation [None]
